FAERS Safety Report 4846292-6 (Version None)
Quarter: 2005Q4

REPORT INFORMATION
  Report Type: 
  Country: None (occurrence: None)
  Receive Date: 20051206
  Receipt Date: 20051129
  Transmission Date: 20060501
  Serious: Yes (Other)
  Sender: FDA-Public Use
  Company Number: US-ROCHE-426631

PATIENT
  Age: 49 Year
  Sex: Female

DRUGS (9)
  1. COPEGUS [Suspect]
     Indication: HEPATITIS C
     Route: 048
     Dates: start: 20050627
  2. PEG-INTRON [Suspect]
     Indication: HEPATITIS C
     Dosage: FORM: REDIPEN.
     Route: 058
     Dates: start: 20050627
  3. ADDERALL 10 [Concomitant]
  4. LEXAPRO [Concomitant]
  5. MECLIZINE [Concomitant]
  6. METOPROLOL TARTRATE [Concomitant]
  7. NEXIUM [Concomitant]
  8. PREMPRO [Concomitant]
  9. PERCOCET [Concomitant]
     Indication: FALL

REACTIONS (17)
  - ASTHENIA [None]
  - BRONCHITIS [None]
  - CHEILITIS [None]
  - COLD SWEAT [None]
  - CRYING [None]
  - DEPRESSION [None]
  - DRUG ABUSER [None]
  - EAR PAIN [None]
  - FATIGUE [None]
  - FEELING HOT [None]
  - HYPERHIDROSIS [None]
  - INSOMNIA [None]
  - NAUSEA [None]
  - STOMATITIS [None]
  - SWOLLEN TONGUE [None]
  - TOOTH DISORDER [None]
  - VOMITING [None]
